FAERS Safety Report 10402178 (Version 1)
Quarter: 2014Q3

REPORT INFORMATION
  Report Type: Spontaneous
  Country: KR (occurrence: KR)
  Receive Date: 20140822
  Receipt Date: 20140822
  Transmission Date: 20150326
  Serious: Yes (Other)
  Sender: FDA-Public Use
  Company Number: KR-RANBAXY-2014RR-84539

PATIENT
  Age: 77 Year
  Sex: Female

DRUGS (13)
  1. AMLODIPINE [Concomitant]
     Active Substance: AMLODIPINE BESYLATE
     Indication: PRODUCT USED FOR UNKNOWN INDICATION
     Dosage: 2.5 MG, UNK
     Route: 065
  2. GWIBI-TANG [Interacting]
     Active Substance: HERBALS
     Indication: DIARRHOEA
  3. GWIBI-TANG [Interacting]
     Active Substance: HERBALS
     Indication: CEREBRAL INFARCTION
  4. GWIBI-TANG [Interacting]
     Active Substance: HERBALS
     Indication: DIABETES MELLITUS
  5. CLOPIDOGREL [Concomitant]
     Active Substance: CLOPIDOGREL BISULFATE
     Indication: PRODUCT USED FOR UNKNOWN INDICATION
     Dosage: 75 MG, UNK
     Route: 065
  6. GWIBI-TANG [Interacting]
     Active Substance: HERBALS
     Indication: INSOMNIA
     Dosage: 6 DOSES PER DAY
     Route: 048
  7. CALCIUM CARBONATE. [Concomitant]
     Active Substance: CALCIUM CARBONATE
     Indication: PRODUCT USED FOR UNKNOWN INDICATION
     Dosage: 500 MG, UNK
     Route: 065
  8. METFORMIN [Suspect]
     Active Substance: METFORMIN HYDROCHLORIDE
     Indication: DIABETES MELLITUS
     Dosage: 500 MG, UNK
     Route: 065
  9. GWIBI-TANG [Interacting]
     Active Substance: HERBALS
     Indication: HYPERTENSION
  10. DONEPEZIL HYDROCHLORIDE. [Concomitant]
     Active Substance: DONEPEZIL HYDROCHLORIDE
     Indication: PRODUCT USED FOR UNKNOWN INDICATION
     Dosage: 5 MG, UNK
     Route: 065
  11. PRAVASTATIN SODIUM. [Concomitant]
     Active Substance: PRAVASTATIN SODIUM
     Indication: PRODUCT USED FOR UNKNOWN INDICATION
     Dosage: 20 MG, UNK
     Route: 065
  12. GWIBI-TANG [Interacting]
     Active Substance: HERBALS
     Indication: PALPITATIONS
  13. NICERGOLINE [Concomitant]
     Active Substance: NICERGOLINE
     Indication: PRODUCT USED FOR UNKNOWN INDICATION
     Dosage: 60 MG, UNK
     Route: 065

REACTIONS (6)
  - Insomnia [Unknown]
  - Drug interaction [Unknown]
  - Hypokalaemia [Unknown]
  - Diarrhoea [Unknown]
  - Faeces soft [Unknown]
  - Palpitations [Unknown]
